FAERS Safety Report 8100745-6 (Version None)
Quarter: 2012Q1

REPORT INFORMATION
  Report Type: 
  Country: None (occurrence: None)
  Receive Date: 20120131
  Receipt Date: 20120123
  Transmission Date: 20120608
  Serious: Yes (Other)
  Sender: FDA-Public Use
  Company Number: CA-AMGEN-CANSP2012000357

PATIENT
  Age: 61 Year
  Sex: Female
  Weight: 95 kg

DRUGS (6)
  1. FOLIC ACID [Concomitant]
     Dosage: 5 MG, 6 TIMES/WK
  2. FOSAMAX [Concomitant]
     Dosage: UNK
  3. METHOTREXATE [Concomitant]
     Indication: PSORIATIC ARTHROPATHY
     Dosage: 25 MG, QWK
     Dates: start: 20050101
  4. ENBREL [Suspect]
     Indication: PSORIATIC ARTHROPATHY
     Dosage: 50 MG, QWK
     Route: 058
     Dates: start: 20101006, end: 20110411
  5. SULFASALAZINE [Concomitant]
     Dosage: 500 MG, BID
  6. CELEBREX [Concomitant]
     Dosage: 200 MG, QD

REACTIONS (20)
  - GAIT DISTURBANCE [None]
  - ARTHRALGIA [None]
  - SPINAL CORD INJURY [None]
  - NUCLEAR MAGNETIC RESONANCE IMAGING BRAIN ABNORMAL [None]
  - CHEST DISCOMFORT [None]
  - MYELITIS TRANSVERSE [None]
  - HYPERTENSION [None]
  - MUSCLE SPASMS [None]
  - FATIGUE [None]
  - ACQUIRED CLAW TOE [None]
  - FEELING COLD [None]
  - SENSORY LOSS [None]
  - HYPOREFLEXIA [None]
  - PARAESTHESIA [None]
  - VISION BLURRED [None]
  - JOINT STIFFNESS [None]
  - ONYCHOLYSIS [None]
  - JOINT WARMTH [None]
  - POST PROCEDURAL COMPLICATION [None]
  - VITRITIS [None]
